FAERS Safety Report 4836846-5 (Version None)
Quarter: 2005Q4

REPORT INFORMATION
  Report Type: 
  Country: None (occurrence: None)
  Receive Date: 20051121
  Receipt Date: 20051003
  Transmission Date: 20060501
  Serious: Yes (Other)
  Sender: FDA-Public Use
  Company Number: S05-NLD-05158-01

PATIENT
  Age: 79 Year
  Sex: Female

DRUGS (4)
  1. ESCITALOPRAM OXALATE [Suspect]
     Dosage: 10 MG QD PO
     Route: 048
     Dates: start: 20050722, end: 20050806
  2. ALPRAZOLAM [Concomitant]
  3. ASCAL (ACETYLSALICYLATE CALCIUM) [Concomitant]
  4. LORMETAZEPAM [Concomitant]

REACTIONS (2)
  - COLOUR BLINDNESS [None]
  - VISUAL ACUITY REDUCED [None]
